FAERS Safety Report 9536732 (Version 1)
Quarter: 2013Q3

REPORT INFORMATION
  Report Type: Spontaneous
  Country: US (occurrence: None)
  Receive Date: 20130918
  Receipt Date: 20130918
  Transmission Date: 20140515
  Serious: Yes (Hospitalization)
  Sender: FDA-Public Use
  Company Number: None

PATIENT
  Age: 74 Year
  Sex: Male
  Weight: 111.6 kg

DRUGS (2)
  1. DIAZEPAM [Suspect]
     Indication: ANXIETY
     Route: 048
     Dates: start: 20130514, end: 20130701
  2. ACETAMINOPHEN/OXYCODONE [Suspect]
     Indication: PAIN
     Dosage: 1-2 TAB OTHER FREQUENCY PO
     Route: 048

REACTIONS (2)
  - Sedation [None]
  - Respiratory alkalosis [None]
